FAERS Safety Report 4335687-5 (Version None)
Quarter: 2004Q2

REPORT INFORMATION
  Report Type: 
  Country: None (occurrence: None)
  Receive Date: 20040409
  Receipt Date: 20031215
  Transmission Date: 20050107
  Serious: Yes (Hospitalization)
  Sender: FDA-Public Use
  Company Number: JP-GLAXOSMITHKLINE-B0318225A

PATIENT
  Age: 71 Year
  Sex: Male
  Weight: 66 kg

DRUGS (4)
  1. CEFAZOLIN [Suspect]
     Indication: INFECTION PROPHYLAXIS
     Dosage: 1G PER DAY
     Route: 042
     Dates: start: 20031212, end: 20031212
  2. ASPIRIN [Concomitant]
  3. ROXATIDINE ACETATE HCL [Concomitant]
  4. ALLOPURINOL TAB [Concomitant]

REACTIONS (1)
  - URTICARIA [None]
